FAERS Safety Report 14014626 (Version 7)
Quarter: 2017Q4

REPORT INFORMATION
  Report Type: Report from Study
  Country: DE (occurrence: DE)
  Receive Date: 20170927
  Receipt Date: 20171129
  Transmission Date: 20180321
  Serious: Yes (Other)
  Sender: FDA-Public Use
  Company Number: DE-ROCHE-1995539

PATIENT
  Age: 31 Year
  Sex: Male
  Weight: 70 kg

DRUGS (7)
  1. PARACETAMOL [Concomitant]
     Active Substance: ACETAMINOPHEN
     Dosage: 1 AMPOULE
     Route: 048
     Dates: start: 20170327, end: 20170327
  2. DEKRISTOL [Concomitant]
     Active Substance: CHOLECALCIFEROL
     Route: 048
     Dates: start: 201701
  3. METHYLPREDNISOLONE. [Suspect]
     Active Substance: METHYLPREDNISOLONE
     Indication: PREMEDICATION
     Dosage: ONCE BEFORE INFUSION?MOST RECENT DOSE PRIOR TO SAE: 27/MAR/2017
     Route: 042
     Dates: start: 20170313
  4. TAVEGIL [Concomitant]
     Active Substance: CLEMASTINE FUMARATE
     Dosage: 1 AMPULE
     Route: 042
     Dates: start: 20170313, end: 20170313
  5. TAVEGIL [Concomitant]
     Active Substance: CLEMASTINE FUMARATE
     Dosage: 1 AMPULE
     Route: 042
     Dates: start: 20170327, end: 20170327
  6. OCRELIZUMAB. [Suspect]
     Active Substance: OCRELIZUMAB
     Indication: RELAPSING-REMITTING MULTIPLE SCLEROSIS
     Dosage: TWO 300 MG IV INFUSIONS ON DAYS 1 AND 15 FOLLOWED BY ONE 600 MG IV INFUSIONS ADMINISTERED AT WEEKS 2
     Route: 042
     Dates: start: 20170313
  7. PARACETAMOL [Concomitant]
     Active Substance: ACETAMINOPHEN
     Route: 048
     Dates: start: 20170313, end: 20170313

REACTIONS (1)
  - Guttate psoriasis [Recovered/Resolved with Sequelae]

NARRATIVE: CASE EVENT DATE: 20170701
